FAERS Safety Report 8805102 (Version 1)
Quarter: 2012Q4

REPORT INFORMATION
  Report Type: 
  Country: US (occurrence: US)
  Receive Date: 20120924
  Receipt Date: 20120924
  Transmission Date: 20130627
  Serious: No
  Sender: FDA-Public Use
  Company Number: US-ALLERGAN-1210117US

PATIENT
  Age: 78 Year
  Sex: Male

DRUGS (1)
  1. LUMIGAN� 0.01% [Suspect]
     Indication: INTRAOCULAR PRESSURE ABNORMAL
     Dosage: 2 Gtt, qhs
     Route: 047
     Dates: start: 20120712, end: 20120717

REACTIONS (2)
  - Eyelid oedema [Recovered/Resolved]
  - Erythema of eyelid [Recovered/Resolved]
